FAERS Safety Report 8195469-3 (Version None)
Quarter: 2012Q1

REPORT INFORMATION
  Report Type: 
  Country: None (occurrence: None)
  Receive Date: 20120308
  Receipt Date: 20120302
  Transmission Date: 20120608
  Serious: Yes (Other)
  Sender: FDA-Public Use
  Company Number: PHHY2012CA012877

PATIENT
  Sex: Female

DRUGS (9)
  1. ZOLEDRONOC ACID [Suspect]
     Dosage: UNK UKN, UNK
     Route: 042
     Dates: start: 20120117
  2. VOLTAREN EMULGEL ^NOVARTIS^ [Concomitant]
     Indication: ANTIINFLAMMATORY THERAPY
     Dates: start: 20120215
  3. APO-ACEBUTOLOL [Concomitant]
     Dosage: 200 MG, BID
     Dates: start: 20120215
  4. AMLODIPINE [Concomitant]
     Dosage: 5 MG, DAILY
     Dates: start: 20120215
  5. HYDROCHLOROTHIAZIDE [Concomitant]
     Dosage: 12.5 MG, DAILY
     Dates: start: 20120215
  6. CARBOCAL D [Concomitant]
     Dosage: 1 DF,  (500 MG, 400 IU) BID
     Dates: start: 20120215
  7. ZOLEDRONOC ACID [Suspect]
     Dosage: UNK UKN, UNK
     Route: 042
     Dates: start: 20110113
  8. ZOLEDRONOC ACID [Suspect]
     Indication: OSTEOPOROSIS
     Dosage: UNK UKN, UNK
     Route: 042
     Dates: start: 20100113
  9. RHOVANE [Concomitant]
     Dosage: 7.5 MG,
     Dates: start: 20120215

REACTIONS (7)
  - CHILLS [None]
  - BACK PAIN [None]
  - MYALGIA [None]
  - FALL [None]
  - JOINT INJURY [None]
  - PAIN [None]
  - MUSCULOSKELETAL PAIN [None]
